FAERS Safety Report 6603456-9 (Version None)
Quarter: 2010Q1

REPORT INFORMATION
  Report Type: 
  Country: None (occurrence: None)
  Receive Date: 20100226
  Receipt Date: 20090616
  Transmission Date: 20100710
  Serious: No
  Sender: FDA-Public Use
  Company Number: A0791772A

PATIENT
  Age: 75 Year
  Sex: Female

DRUGS (4)
  1. VALTREX [Suspect]
     Indication: GENITAL HERPES
     Dosage: 500MG PER DAY
     Route: 048
     Dates: start: 20071001
  2. HYDRODIURIL [Concomitant]
     Indication: THYROID DISORDER
  3. CALCIUM + D [Concomitant]
  4. VITAMIN D [Concomitant]

REACTIONS (2)
  - GENITAL HERPES [None]
  - HERPES VIRUS INFECTION [None]
